FAERS Safety Report 15051114 (Version 1)
Quarter: 2018Q2

REPORT INFORMATION
  Report Type: Spontaneous
  Country: US (occurrence: US)
  Receive Date: 20180601
  Receipt Date: 20180601
  Transmission Date: 20180711
  Serious: No
  Sender: FDA-Public Use
  Company Number: None

PATIENT
  Age: 59 Year
  Sex: Female
  Weight: 64 kg

DRUGS (1)
  1. LIDOCAINE. [Suspect]
     Active Substance: LIDOCAINE
     Indication: PAIN
     Dosage: ?          OTHER DOSE:1 UNITS;?
     Route: 061
     Dates: start: 20160420, end: 20170726

REACTIONS (1)
  - Application site discomfort [None]

NARRATIVE: CASE EVENT DATE: 20170726
